FAERS Safety Report 8245908-4 (Version None)
Quarter: 2012Q1

REPORT INFORMATION
  Report Type: 
  Country: None (occurrence: None)
  Receive Date: 20120328
  Receipt Date: 20120328
  Transmission Date: 20120608
  Serious: Yes (Death)
  Sender: FDA-Public Use
  Company Number: None

PATIENT
  Age: 69 Year
  Sex: Female
  Weight: 113.6 kg

DRUGS (1)
  1. CHLORHEXIDINE GLUCONATE [Suspect]

REACTIONS (5)
  - RENAL FAILURE [None]
  - NECROSIS [None]
  - WRONG DRUG ADMINISTERED [None]
  - PRODUCT LABEL ISSUE [None]
  - RESPIRATORY FAILURE [None]
